FAERS Safety Report 18589145 (Version 1)
Quarter: 2020Q4

REPORT INFORMATION
  Report Type: Report from Study
  Country: US (occurrence: US)
  Receive Date: 20201208
  Receipt Date: 20201208
  Transmission Date: 20210114
  Serious: Yes (Hospitalization)
  Sender: FDA-Public Use
  Company Number: US-ROCHE-2727731

PATIENT
  Age: 70 Year
  Sex: Female
  Weight: 103.5 kg

DRUGS (11)
  1. VENETOCLAX. [Suspect]
     Active Substance: VENETOCLAX
     Dosage: ON DAYS 15- 21, CYCLE 3
     Route: 048
     Dates: start: 20201019, end: 20201025
  2. VENETOCLAX. [Suspect]
     Active Substance: VENETOCLAX
     Dosage: ON DAYS 22-28, CYCLE 3
     Route: 048
     Dates: start: 20201026, end: 20201101
  3. OBINUTUZUMAB. [Suspect]
     Active Substance: OBINUTUZUMAB
     Indication: CHRONIC LYMPHOCYTIC LEUKAEMIA
     Dosage: ON DAY 1 OF CYCLE 1
     Route: 042
     Dates: start: 20200810, end: 20200810
  4. OBINUTUZUMAB. [Suspect]
     Active Substance: OBINUTUZUMAB
     Dosage: DATE OF LAST DOSE OF OBINUTUZUMAB ADMINISTERED: 22/OCT/2020
     Route: 042
     Dates: start: 20200907
  5. OBINUTUZUMAB. [Suspect]
     Active Substance: OBINUTUZUMAB
     Dosage: ON DAY 2 OF CYCLE 1
     Route: 042
     Dates: start: 20200811, end: 20200811
  6. VENETOCLAX. [Suspect]
     Active Substance: VENETOCLAX
     Indication: CHRONIC LYMPHOCYTIC LEUKAEMIA
     Dosage: ON  DAYS 1-7 CYCLE 3
     Route: 048
     Dates: start: 20201005, end: 20201011
  7. VENETOCLAX. [Suspect]
     Active Substance: VENETOCLAX
     Dosage: ON DAYS 1-28, CYCLES 4-14?DATE OF LAST DOSE OF VENETOCLAX ADMINISTERED: 18/NOV/2020
     Route: 048
     Dates: start: 20201102
  8. OBINUTUZUMAB. [Suspect]
     Active Substance: OBINUTUZUMAB
     Route: 042
     Dates: start: 20200817, end: 20200817
  9. OBINUTUZUMAB. [Suspect]
     Active Substance: OBINUTUZUMAB
     Route: 042
     Dates: start: 20200824, end: 20200824
  10. IBRUTINIB [Suspect]
     Active Substance: IBRUTINIB
     Indication: CHRONIC LYMPHOCYTIC LEUKAEMIA
     Dosage: DATE OF LAST DOSE OF IBRUTINIB ADMENISTERED: 18/NOV/2020
     Route: 048
     Dates: start: 20200810
  11. VENETOCLAX. [Suspect]
     Active Substance: VENETOCLAX
     Dosage: ON DAYS 8-14, CYCLE 3
     Route: 048
     Dates: start: 20201012, end: 20201018

REACTIONS (1)
  - Nephrolithiasis [Recovered/Resolved]

NARRATIVE: CASE EVENT DATE: 20201119
